FAERS Safety Report 18371938 (Version 2)
Quarter: 2025Q1

REPORT INFORMATION
  Report Type: Spontaneous
  Country: US (occurrence: US)
  Receive Date: 20201012
  Receipt Date: 20250222
  Transmission Date: 20250408
  Serious: No
  Sender: SANOFI AVENTIS
  Company Number: US-SA-2020SA281264

PATIENT
  Age: 55 Year
  Sex: Female
  Weight: 83.18 kg

DRUGS (8)
  1. DUPIXENT [Suspect]
     Active Substance: DUPILUMAB
     Indication: Chronic rhinosinusitis with nasal polyps
     Dosage: 300 MG, QOW
     Route: 058
     Dates: end: 20250213
  2. DUPIXENT [Suspect]
     Active Substance: DUPILUMAB
     Indication: Nasal polyps
  3. DUPIXENT [Suspect]
     Active Substance: DUPILUMAB
     Indication: Asthma
  4. DUPIXENT [Suspect]
     Active Substance: DUPILUMAB
     Indication: Chronic sinusitis
  5. FISH OIL [Concomitant]
     Active Substance: FISH OIL
  6. ALBUTEROL SULFATE [Concomitant]
     Active Substance: ALBUTEROL SULFATE
  7. CALCIPOTRIENE [Concomitant]
     Active Substance: CALCIPOTRIENE
  8. CLOBETASOL [Concomitant]
     Active Substance: CLOBETASOL

REACTIONS (6)
  - Psoriasis [Unknown]
  - Injection site haemorrhage [Unknown]
  - Injection site pain [Unknown]
  - Injection site urticaria [Unknown]
  - Injection site erythema [Unknown]
  - Injection site warmth [Unknown]

NARRATIVE: CASE EVENT DATE: 20250101
